FAERS Safety Report 13058222 (Version 4)
Quarter: 2017Q1

REPORT INFORMATION
  Report Type: Spontaneous
  Country: FR (occurrence: FR)
  Receive Date: 20161223
  Receipt Date: 20170209
  Transmission Date: 20170428
  Serious: Yes (Hospitalization, Other)
  Sender: FDA-Public Use
  Company Number: FR-AMGEN-FRASP2016081223

PATIENT
  Age: 63 Year
  Sex: Male
  Weight: 90 kg

DRUGS (1)
  1. PROLIA [Suspect]
     Active Substance: DENOSUMAB
     Indication: OSTEOPOROSIS
     Dosage: UNK (DF 51 DF, 1 IN 1 SINGLE DOSE)
     Route: 058
     Dates: start: 20141210, end: 20141210

REACTIONS (4)
  - Skin hyperpigmentation [Recovering/Resolving]
  - Skin disorder [Unknown]
  - Lichenoid keratosis [Recovering/Resolving]
  - Photosensitivity reaction [Not Recovered/Not Resolved]

NARRATIVE: CASE EVENT DATE: 20150110
